FAERS Safety Report 18958419 (Version 1)
Quarter: 2021Q1

REPORT INFORMATION
  Report Type: Spontaneous
  Country: JP (occurrence: JP)
  Receive Date: 20210302
  Receipt Date: 20210302
  Transmission Date: 20210420
  Serious: Yes (Hospitalization)
  Sender: FDA-Public Use
  Company Number: JP-BAYER-2021-082517

PATIENT
  Age: 84 Year
  Sex: Male

DRUGS (1)
  1. NUBEQA [Suspect]
     Active Substance: DAROLUTAMIDE
     Indication: PROSTATIC SPECIFIC ANTIGEN INCREASED
     Dosage: 1 DF, BID
     Dates: start: 20210118, end: 20210212

REACTIONS (4)
  - Eczema [None]
  - Asthenia [None]
  - Off label use [None]
  - Pyrexia [None]

NARRATIVE: CASE EVENT DATE: 20210201
